FAERS Safety Report 4968673-2 (Version None)
Quarter: 2006Q2

REPORT INFORMATION
  Report Type: 
  Country: None (occurrence: None)
  Receive Date: 20060411
  Receipt Date: 20051003
  Transmission Date: 20061013
  Serious: Yes (Other)
  Sender: FDA-Public Use
  Company Number: PHEH2005US10975

PATIENT
  Age: 70 Year
  Sex: Female
  Weight: 97.052 kg

DRUGS (3)
  1. ANTIBIOTICS [Concomitant]
  2. AREDIA [Suspect]
  3. ZOMETA [Suspect]
     Dosage: UNK, UNK
     Dates: start: 20030106

REACTIONS (18)
  - ANAEMIA [None]
  - ARTHRALGIA [None]
  - BONE DEBRIDEMENT [None]
  - CONTUSION [None]
  - DYSPNOEA [None]
  - ERYTHEMA [None]
  - FALL [None]
  - FATIGUE [None]
  - GASTROINTESTINAL DISORDER [None]
  - GASTROINTESTINAL PAIN [None]
  - HAEMANGIOMA OF LIVER [None]
  - OSTEOMYELITIS [None]
  - OSTEONECROSIS [None]
  - PAIN [None]
  - PULMONARY MASS [None]
  - RESPIRATORY DISORDER [None]
  - SINUSITIS [None]
  - VAGINAL DISCHARGE [None]
